FAERS Safety Report 14166534 (Version 2)
Quarter: 2017Q4

REPORT INFORMATION
  Report Type: Spontaneous
  Country: RO (occurrence: RO)
  Receive Date: 20171107
  Receipt Date: 20171116
  Transmission Date: 20180321
  Serious: Yes (Other)
  Sender: FDA-Public Use
  Company Number: RO-AMGEN-ROUSP2017166587

PATIENT
  Age: 59 Year
  Sex: Female
  Weight: 58 kg

DRUGS (12)
  1. OXALIPLATIN. [Concomitant]
     Active Substance: OXALIPLATIN
     Indication: METASTASES TO LUNG
     Dosage: 150 MG, PEV2 H 9X
  2. VECTIBIX [Suspect]
     Active Substance: PANITUMUMAB
     Indication: METASTASES TO LUNG
  3. FLUOROURACIL. [Concomitant]
     Active Substance: FLUOROURACIL
     Indication: METASTASES TO LUNG
     Dosage: 2000 MG, PEV46 HOURS 9X-10X 9X-10X2017
  4. OXALIPLATIN. [Concomitant]
     Active Substance: OXALIPLATIN
     Indication: METASTASES TO LIVER
  5. OXALIPLATIN. [Concomitant]
     Active Substance: OXALIPLATIN
     Indication: COLORECTAL CANCER
  6. CALCIUM FOLINAT [Concomitant]
     Active Substance: LEUCOVORIN CALCIUM
     Indication: COLORECTAL CANCER
  7. FLUOROURACIL. [Concomitant]
     Active Substance: FLUOROURACIL
     Indication: METASTASES TO LIVER
  8. VECTIBIX [Suspect]
     Active Substance: PANITUMUMAB
     Indication: METASTASES TO LIVER
  9. FLUOROURACIL. [Concomitant]
     Active Substance: FLUOROURACIL
     Indication: COLORECTAL CANCER
  10. VECTIBIX [Suspect]
     Active Substance: PANITUMUMAB
     Indication: COLORECTAL CANCER
     Dosage: 400 MG, Q2WK (EVERY 14 DAYS)
     Route: 042
     Dates: start: 20171009, end: 20171009
  11. CALCIUM FOLINAT [Concomitant]
     Active Substance: LEUCOVORIN CALCIUM
     Indication: METASTASES TO LUNG
     Dosage: 200 MG, PEV2 H 9X
  12. CALCIUM FOLINAT [Concomitant]
     Active Substance: LEUCOVORIN CALCIUM
     Indication: METASTASES TO LIVER

REACTIONS (4)
  - Cellulitis [Recovering/Resolving]
  - Skin necrosis [Recovering/Resolving]
  - Skin infection [Recovering/Resolving]
  - Rash pustular [Recovering/Resolving]

NARRATIVE: CASE EVENT DATE: 20171009
